FAERS Safety Report 19627504 (Version 2)
Quarter: 2022Q2

REPORT INFORMATION
  Report Type: Report from Study
  Country: CA (occurrence: CA)
  Receive Date: 20210729
  Receipt Date: 20220420
  Transmission Date: 20220721
  Serious: Yes (Other)
  Sender: FDA-Public Use
  Company Number: None

PATIENT
  Sex: Female

DRUGS (5)
  1. METHOTREXATE [Suspect]
     Active Substance: METHOTREXATE
     Indication: Psoriasis
  2. BETAMETHASONE\CALCIPOTRIENE [Concomitant]
     Active Substance: BETAMETHASONE\CALCIPOTRIENE
     Indication: Product used for unknown indication
  3. DOVONEX [Concomitant]
     Active Substance: CALCIPOTRIENE
     Indication: Product used for unknown indication
  4. APREMILAST [Concomitant]
     Active Substance: APREMILAST
     Indication: Product used for unknown indication
  5. SORIATANE [Concomitant]
     Active Substance: ACITRETIN
     Indication: Product used for unknown indication

REACTIONS (11)
  - Quality of life decreased [Unknown]
  - Condition aggravated [Unknown]
  - Pruritus [Unknown]
  - Pain of skin [Unknown]
  - Pain in extremity [Unknown]
  - Pain [Unknown]
  - Gait disturbance [Unknown]
  - Chest X-ray abnormal [Unknown]
  - Burning sensation [Unknown]
  - Haemorrhage [Unknown]
  - Psoriasis [Unknown]
